FAERS Safety Report 5205257-5 (Version None)
Quarter: 2007Q1

REPORT INFORMATION
  Report Type: 
  Country: None (occurrence: None)
  Receive Date: 20070110
  Receipt Date: 20070103
  Transmission Date: 20070707
  Serious: Yes (Hospitalization)
  Sender: FDA-Public Use
  Company Number: FR-PFIZER INC-2007001659

PATIENT
  Age: 56 Year
  Sex: Male

DRUGS (6)
  1. SUTENT [Suspect]
     Indication: RENAL CELL CARCINOMA STAGE II
     Dosage: DAILY DOSE:50MG
     Route: 048
  2. LEVOTHYROXINE SODIUM [Concomitant]
  3. MORPHINE [Concomitant]
  4. HYDROCORTISONE [Concomitant]
  5. NISISCO [Concomitant]
  6. FLUDROCORTISONE ACETATE [Concomitant]

REACTIONS (1)
  - DERMATITIS PSORIASIFORM [None]
